FAERS Safety Report 6997292-1 (Version None)
Quarter: 2010Q3

REPORT INFORMATION
  Report Type: 
  Country: None (occurrence: None)
  Receive Date: 20100918
  Receipt Date: 20091002
  Transmission Date: 20110219
  Serious: No
  Sender: FDA-Public Use
  Company Number: US-WYE-H11364109

PATIENT
  Sex: Male
  Weight: 95.34 kg

DRUGS (7)
  1. EFFEXOR XR [Suspect]
     Indication: DEPRESSION
     Route: 048
     Dates: start: 20060901, end: 20090101
  2. EFFEXOR XR [Suspect]
     Dosage: 37.5 MG DAILY THEN 37.5 MG EVERY OTHER DAY
     Route: 048
     Dates: start: 20090101, end: 20090901
  3. ACETYLSALICYLIC ACID [Concomitant]
  4. LISINOPRIL [Concomitant]
  5. POTASSIUM [Concomitant]
  6. METOPROLOL [Concomitant]
  7. LIPITOR [Concomitant]

REACTIONS (2)
  - ABNORMAL DREAMS [None]
  - DRUG WITHDRAWAL SYNDROME [None]
